FAERS Safety Report 21453329 (Version 1)
Quarter: 2022Q4

REPORT INFORMATION
  Report Type: Spontaneous
  Country: US (occurrence: None)
  Receive Date: 20221012
  Receipt Date: 20221012
  Transmission Date: 20230112
  Serious: No
  Sender: FDA-Public Use
  Company Number: None

PATIENT
  Age: 65 Year
  Sex: Female
  Weight: 81.65 kg

DRUGS (8)
  1. PIQRAY [Suspect]
     Active Substance: ALPELISIB
     Indication: Breast cancer female
     Dosage: FREQUENCY : DAILY;?
     Route: 048
     Dates: start: 20221011
  2. CLONAZEPAM [Concomitant]
  3. FULVESTRANT [Concomitant]
  4. LABETOLOL [Concomitant]
  5. MAGOX [Concomitant]
  6. PROCHLORPERAZINE [Concomitant]
  7. SYNTHROID [Concomitant]
  8. TRAZODONE [Concomitant]

REACTIONS (2)
  - Hepatic enzyme increased [None]
  - Therapy interrupted [None]
